FAERS Safety Report 6566897-4 (Version None)
Quarter: 2010Q1

REPORT INFORMATION
  Report Type: 
  Country: None (occurrence: None)
  Receive Date: 20100202
  Receipt Date: 20100118
  Transmission Date: 20100710
  Serious: Yes (Other)
  Sender: FDA-Public Use
  Company Number: US-JNJCH-2010002368

PATIENT
  Age: 79 Year
  Sex: Female
  Weight: 99.8 kg

DRUGS (6)
  1. ROLAIDS [Suspect]
     Indication: ABDOMINAL DISCOMFORT
     Dosage: TEXT:2 TABLETS AS NEEDED
     Route: 048
  2. ACETYLSALICYLIC ACID [Suspect]
     Indication: PROPHYLAXIS
     Route: 048
  3. ADVAIR DISKUS 100/50 [Concomitant]
     Indication: ASTHMA
     Dosage: TEXT:UNSPECIFIED 1 X A DAY
     Route: 065
  4. DIOVAN [Concomitant]
     Indication: BLOOD PRESSURE
     Dosage: TEXT:UNSPECIFIED 1X A DAY
     Route: 065
  5. SPIRIVA [Concomitant]
     Indication: ASTHMA
     Dosage: TEXT:UNSPECIFIED 1X A DAY
     Route: 048
  6. CARDIZEM [Concomitant]
     Indication: BLOOD PRESSURE
     Dosage: TEXT:500 MG 1X A DAY
     Route: 065

REACTIONS (2)
  - KIDNEY INFECTION [None]
  - PRODUCT QUALITY ISSUE [None]
